FAERS Safety Report 11957707 (Version 1)
Quarter: 2016Q1

REPORT INFORMATION
  Report Type: Spontaneous
  Country: US (occurrence: US)
  Receive Date: 20160126
  Receipt Date: 20160126
  Transmission Date: 20160526
  Serious: No
  Sender: FDA-Public Use
  Company Number: US-LUNDBECK-DKLU2007861

PATIENT
  Sex: Female

DRUGS (1)
  1. NORTHERA [Suspect]
     Active Substance: DROXIDOPA
     Indication: PRODUCT USED FOR UNKNOWN INDICATION
     Route: 065

REACTIONS (7)
  - Activities of daily living impaired [Unknown]
  - Abdominal pain upper [Unknown]
  - Temperature regulation disorder [Unknown]
  - Dizziness [Unknown]
  - Pain in extremity [Unknown]
  - Feeling abnormal [Unknown]
  - Fatigue [Unknown]
